FAERS Safety Report 5113207-5 (Version None)
Quarter: 2006Q3

REPORT INFORMATION
  Report Type: 
  Country: None (occurrence: None)
  Receive Date: 20060920
  Receipt Date: 20060830
  Transmission Date: 20061208
  Serious: Yes (Other)
  Sender: FDA-Public Use
  Company Number: US200608006957

PATIENT
  Age: 47 Year
  Sex: Male

DRUGS (4)
  1. ZYPREXA ZYDIS [Suspect]
     Indication: BIPOLAR I DISORDER
     Dosage: 5 MG, DAILY (1/D),; 15 MG, DAILY (1/D),
     Dates: end: 20060828
  2. ZYPREXA ZYDIS [Suspect]
     Indication: BIPOLAR I DISORDER
     Dosage: 5 MG, DAILY (1/D),; 15 MG, DAILY (1/D),
     Dates: start: 20060607
  3. LOTREL [Concomitant]
  4. MARIJUANA (CANNABIS) [Concomitant]

REACTIONS (4)
  - LARYNGOSPASM [None]
  - MIDDLE INSOMNIA [None]
  - PANIC ATTACK [None]
  - SUFFOCATION FEELING [None]
